FAERS Safety Report 13155950 (Version 1)
Quarter: 2017Q1

REPORT INFORMATION
  Report Type: Spontaneous
  Country: US (occurrence: US)
  Receive Date: 20170126
  Receipt Date: 20170126
  Transmission Date: 20170428
  Serious: No
  Sender: FDA-Public Use
  Company Number: GXBR2016US003269

PATIENT
  Sex: Female
  Weight: 60.77 kg

DRUGS (2)
  1. METFORMIN HCL TABLETS [Suspect]
     Active Substance: METFORMIN HYDROCHLORIDE
     Indication: TYPE 2 DIABETES MELLITUS
     Dosage: 500 NG, TID
     Route: 048
  2. METFORMIN HCL TABLETS [Suspect]
     Active Substance: METFORMIN HYDROCHLORIDE
     Dosage: 2000 MG, QD
     Route: 048
     Dates: end: 20160803

REACTIONS (11)
  - Food poisoning [Unknown]
  - Faeces discoloured [Not Recovered/Not Resolved]
  - Anal incontinence [Recovering/Resolving]
  - Weight decreased [Unknown]
  - Fatigue [Unknown]
  - Malaise [Unknown]
  - Hypersomnia [Unknown]
  - Diarrhoea [Recovering/Resolving]
  - Nausea [Unknown]
  - Blood glucose increased [Unknown]
  - Clostridium test positive [Unknown]
